FAERS Safety Report 25806100 (Version 3)
Quarter: 2025Q4

REPORT INFORMATION
  Report Type: Spontaneous
  Country: EU (occurrence: EU)
  Receive Date: 20250916
  Receipt Date: 20251114
  Transmission Date: 20260118
  Serious: No
  Sender: IPSEN BIOPHARMACEUTICALS, INC.
  Company Number: EU-IPSEN Group, Research and Development-2025-20826

PATIENT
  Age: 15 Year
  Sex: Male
  Weight: 34.5 kg

DRUGS (9)
  1. ODEVIXIBAT SESQUIHYDRATE [Suspect]
     Active Substance: ODEVIXIBAT SESQUIHYDRATE
     Indication: Alagille syndrome
     Dosage: 3 CAPSULE OF 1200 MICROGRAM, DAILY IN THE MORNING
     Route: 048
     Dates: start: 20250331, end: 20250720
  2. ODEVIXIBAT SESQUIHYDRATE [Suspect]
     Active Substance: ODEVIXIBAT SESQUIHYDRATE
     Dosage: DAILY FOR A MONTH
     Route: 048
     Dates: start: 20250721, end: 20251028
  3. ODEVIXIBAT SESQUIHYDRATE [Suspect]
     Active Substance: ODEVIXIBAT SESQUIHYDRATE
     Dosage: KAYFANDA POSOLOGY WAS INCREASED TO THE MAXIMUM DOSE
     Route: 048
  4. RIFADINE 20 mg/ml [Concomitant]
     Dosage: 20 MG/ML, 10.5 ML TWICE DAILY (14 MG/KG DAILY)
  5. URSODIOL [Concomitant]
     Active Substance: URSODIOL
     Dosage: ONE TABLET IN THE MORNING AND IN THE EVENING
  6. CHOLECALCIFEROL [Concomitant]
     Active Substance: CHOLECALCIFEROL
     Dosage: 1 VIAL PER MONTH
  7. VITAMIN K [Concomitant]
     Active Substance: PHYTONADIONE
     Dosage: 10 MG EVERY 15 DAYS
     Route: 048
  8. TOCO 500 mg [Concomitant]
  9. Maltodextridine [Concomitant]
     Dosage: 2 SPOONS PER MEAL

REACTIONS (11)
  - Pruritus [Not Recovered/Not Resolved]
  - Skin lesion [Not Recovered/Not Resolved]
  - Insomnia [Not Recovered/Not Resolved]
  - Middle insomnia [Not Recovered/Not Resolved]
  - Fatigue [Not Recovered/Not Resolved]
  - Jaundice [Not Recovered/Not Resolved]
  - Spider naevus [Not Recovered/Not Resolved]
  - Limb girth decreased [Not Recovered/Not Resolved]
  - Cardiac murmur [Not Recovered/Not Resolved]
  - Off label use [Unknown]
  - Drug ineffective [Unknown]

NARRATIVE: CASE EVENT DATE: 20250501
